FAERS Safety Report 24685861 (Version 2)
Quarter: 2025Q1

REPORT INFORMATION
  Report Type: Report from Study
  Country: US (occurrence: US)
  Receive Date: 20241202
  Receipt Date: 20250311
  Transmission Date: 20250408
  Serious: Yes (Hospitalization)
  Sender: BLUEBIRD BIO
  Company Number: US-BLUEBIRD BIO-US-BBB-24-00063

PATIENT
  Age: 10 Year
  Sex: Female
  Weight: 42.7 kg

DRUGS (80)
  1. ZYNTEGLO [Suspect]
     Active Substance: BETIBEGLOGENE AUTOTEMCEL
     Indication: Thalassaemia beta
     Route: 042
     Dates: start: 20230425, end: 20230425
  2. BUSULFAN [Concomitant]
     Active Substance: BUSULFAN
     Indication: Bone marrow conditioning regimen
     Dosage: 3.2 MILLIGRAM/KILOGRAM, QD
     Route: 042
     Dates: start: 20230419, end: 20230422
  3. MOZOBIL [Concomitant]
     Active Substance: PLERIXAFOR
     Indication: Haematopoietic stem cell mobilisation
  4. FILGRASTIM [Concomitant]
     Active Substance: FILGRASTIM
     Indication: Haematopoietic stem cell mobilisation
     Dosage: 300 MICROGRAM, QD
     Dates: start: 20221202, end: 20221205
  5. URSODIOL [Concomitant]
     Active Substance: URSODIOL
     Indication: Product used for unknown indication
     Dosage: 300 MILLIGRAM, Q12H
     Route: 048
     Dates: start: 20230418, end: 20230428
  6. URSODIOL [Concomitant]
     Active Substance: URSODIOL
     Dosage: 300 MILLIGRAM, Q12H
     Route: 048
     Dates: start: 20230428, end: 20230526
  7. ONDANSETRON [Concomitant]
     Active Substance: ONDANSETRON
     Indication: Product used for unknown indication
     Dosage: 6.4 MILLIGRAM, Q8H
     Route: 042
     Dates: start: 20230419, end: 20230424
  8. LEVETIRACETAM [Concomitant]
     Active Substance: LEVETIRACETAM
     Indication: Product used for unknown indication
     Dosage: 375 MILLIGRAM, BID
     Route: 048
     Dates: start: 20240418, end: 20240424
  9. MIDAZOLAM [Concomitant]
     Active Substance: MIDAZOLAM
     Indication: Product used for unknown indication
     Route: 048
     Dates: start: 20230418, end: 20230418
  10. OXYCODONE [Concomitant]
     Active Substance: OXYCODONE
     Indication: Product used for unknown indication
     Route: 048
     Dates: start: 20230418, end: 20230418
  11. OXYCODONE [Concomitant]
     Active Substance: OXYCODONE
     Dosage: 5 MILLIGRAM, Q4H PRN
     Route: 048
     Dates: start: 20230418, end: 20230503
  12. ASCORBIC ACID [Concomitant]
     Active Substance: ASCORBIC ACID
     Indication: Product used for unknown indication
     Dosage: 1000 MILLIGRAM, QD
     Route: 048
     Dates: start: 20230418, end: 20230421
  13. ASCORBIC ACID [Concomitant]
     Active Substance: ASCORBIC ACID
     Dosage: 125 MILLIGRAM, QD
     Route: 048
     Dates: start: 20230422, end: 20230428
  14. CHOLECALCIFEROL [Concomitant]
     Active Substance: CHOLECALCIFEROL
     Indication: Product used for unknown indication
     Dosage: 25 MICROGRAM, QD
     Route: 048
     Dates: start: 20230418, end: 20230429
  15. CHOLECALCIFEROL [Concomitant]
     Active Substance: CHOLECALCIFEROL
     Dosage: 30 MICROGRAM, QD
     Route: 048
     Dates: start: 20230430, end: 20230531
  16. TYLENOL [Concomitant]
     Active Substance: ACETAMINOPHEN
     Indication: Product used for unknown indication
     Dosage: 650 MILLIGRAM, Q4H PRN
     Route: 048
     Dates: start: 20230418, end: 20230502
  17. TYLENOL [Concomitant]
     Active Substance: ACETAMINOPHEN
     Route: 048
     Dates: start: 20230425, end: 20230425
  18. TYLENOL [Concomitant]
     Active Substance: ACETAMINOPHEN
     Dosage: 650 MILLIGRAM, Q4H PRN
     Route: 048
     Dates: start: 20230502, end: 20230504
  19. DEXTROSE;POTASSIUM CHLORIDE;SODIUM CHLORIDE [Concomitant]
     Indication: Product used for unknown indication
     Route: 042
     Dates: start: 20230418, end: 20230427
  20. APREPITANT [Concomitant]
     Active Substance: APREPITANT
     Indication: Product used for unknown indication
     Dosage: 80 MILLIGRAM, QD
     Route: 048
     Dates: start: 20230419, end: 20230420
  21. APREPITANT [Concomitant]
     Active Substance: APREPITANT
     Route: 048
     Dates: start: 20230419, end: 20230419
  22. ATIVAN [Concomitant]
     Active Substance: LORAZEPAM
     Indication: Product used for unknown indication
     Dosage: 0.86 MILLIGRAM, Q6H
     Route: 042
     Dates: start: 20230418, end: 20230421
  23. PROCHLORPERAZINE [Concomitant]
     Active Substance: PROCHLORPERAZINE
     Indication: Product used for unknown indication
     Dosage: 4.25 MILLIGRAM, Q6H PRN
     Route: 042
     Dates: start: 20230418, end: 20230531
  24. DIPHENHYDRAMINE [Concomitant]
     Active Substance: DIPHENHYDRAMINE
     Indication: Product used for unknown indication
     Dosage: 42.5 MILLIGRAM, Q6H, PRN
     Route: 042
     Dates: start: 20230418, end: 20230420
  25. DIPHENHYDRAMINE [Concomitant]
     Active Substance: DIPHENHYDRAMINE
     Route: 042
     Dates: start: 20230425, end: 20230425
  26. DIPHENHYDRAMINE [Concomitant]
     Active Substance: DIPHENHYDRAMINE
     Dosage: 25 MILLIGRAM, Q6H, PRN
     Route: 042
     Dates: start: 20230420, end: 20230503
  27. DIPHENHYDRAMINE [Concomitant]
     Active Substance: DIPHENHYDRAMINE
     Dosage: 25 MILLIGRAM, Q6H, PRN
     Route: 042
     Dates: start: 20230503, end: 20230506
  28. COTRIMOXAZOLE [Concomitant]
     Active Substance: SULFAMETHOXAZOLE\TRIMETHOPRIM
     Indication: Product used for unknown indication
     Dosage: 100 MILLIGRAM, Q12H
     Route: 048
     Dates: start: 20230418, end: 20230422
  29. ACYCLOVIR [Concomitant]
     Active Substance: ACYCLOVIR
     Indication: Product used for unknown indication
     Dosage: 325 MILLIGRAM, Q8H
     Route: 042
     Dates: start: 20230418, end: 20230523
  30. CHLORHEXIDINE [Concomitant]
     Active Substance: CHLORHEXIDINE
     Indication: Product used for unknown indication
     Dosage: 15 MILLILITER, TID, SWISH + SPIT
     Route: 048
     Dates: start: 20230418, end: 20230531
  31. FLUCONAZOLE [Concomitant]
     Active Substance: FLUCONAZOLE
     Indication: Product used for unknown indication
     Dosage: 256 MILLIGRAM, QD
     Route: 042
     Dates: start: 20230418, end: 20230523
  32. ENDARI [Concomitant]
     Active Substance: GLUTAMINE
     Indication: Product used for unknown indication
     Dosage: 3.89 GRAM, BID
     Route: 048
     Dates: start: 20230418, end: 20230428
  33. PHYTONADIONE [Concomitant]
     Active Substance: PHYTONADIONE
     Indication: Product used for unknown indication
     Dosage: 5 MILLIGRAM, TIW, EVERY MO, WE + FR
     Route: 048
     Dates: start: 20230419, end: 20230523
  34. LEVOFLOXACIN [Concomitant]
     Active Substance: LEVOFLOXACIN
     Indication: Product used for unknown indication
     Dosage: 375 MILLIGRAM, QD
     Route: 048
     Dates: start: 20230423, end: 20230428
  35. LEVOFLOXACIN [Concomitant]
     Active Substance: LEVOFLOXACIN
     Dosage: 440 MILLIGRAM, QD
     Route: 042
     Dates: start: 20230428, end: 20230504
  36. SODIUM CHLORIDE [Concomitant]
     Active Substance: SODIUM CHLORIDE
     Indication: Product used for unknown indication
     Route: 042
     Dates: start: 20230418, end: 20230420
  37. DEXTROSE [Concomitant]
     Active Substance: DEXTROSE MONOHYDRATE
     Indication: Product used for unknown indication
     Route: 042
     Dates: start: 20230420, end: 20230531
  38. DEXTROSE [Concomitant]
     Active Substance: DEXTROSE MONOHYDRATE
     Route: 042
     Dates: start: 20230427, end: 20230531
  39. SENOKOT [Concomitant]
     Active Substance: SENNOSIDES
     Indication: Product used for unknown indication
     Route: 048
     Dates: start: 20230420, end: 20230421
  40. SENOKOT [Concomitant]
     Active Substance: SENNOSIDES
     Dosage: 8.6 MILLIGRAM, BID
     Route: 048
     Dates: start: 20230421, end: 20230422
  41. COLACE CLEAR [Concomitant]
     Active Substance: DOCUSATE SODIUM
     Indication: Product used for unknown indication
     Route: 048
     Dates: start: 20230420, end: 20230421
  42. COLACE CLEAR [Concomitant]
     Active Substance: DOCUSATE SODIUM
     Dosage: 50 MILLIGRAM, BID
     Route: 048
     Dates: start: 20230421, end: 20230422
  43. AMINO ACIDS\CARBOHYDRATES\MINERALS\VITAMINS [Concomitant]
     Active Substance: AMINO ACIDS\CARBOHYDRATES\MINERALS\VITAMINS
     Indication: Product used for unknown indication
     Route: 042
     Dates: start: 20230424, end: 20230425
  44. AMINO ACIDS\CARBOHYDRATES\MINERALS\VITAMINS [Concomitant]
     Active Substance: AMINO ACIDS\CARBOHYDRATES\MINERALS\VITAMINS
     Route: 042
     Dates: start: 20230425, end: 20230426
  45. AMINO ACIDS\CARBOHYDRATES\MINERALS\VITAMINS [Concomitant]
     Active Substance: AMINO ACIDS\CARBOHYDRATES\MINERALS\VITAMINS
     Route: 042
     Dates: start: 20230426, end: 20230427
  46. AMINO ACIDS\CARBOHYDRATES\MINERALS\VITAMINS [Concomitant]
     Active Substance: AMINO ACIDS\CARBOHYDRATES\MINERALS\VITAMINS
     Route: 042
     Dates: start: 20230427, end: 20230428
  47. AMINO ACIDS\CARBOHYDRATES\MINERALS\VITAMINS [Concomitant]
     Active Substance: AMINO ACIDS\CARBOHYDRATES\MINERALS\VITAMINS
     Route: 042
     Dates: start: 20230428, end: 20230429
  48. AMINO ACIDS\CARBOHYDRATES\MINERALS\VITAMINS [Concomitant]
     Active Substance: AMINO ACIDS\CARBOHYDRATES\MINERALS\VITAMINS
     Route: 042
     Dates: start: 20230429, end: 20230430
  49. AMINO ACIDS\CARBOHYDRATES\MINERALS\VITAMINS [Concomitant]
     Active Substance: AMINO ACIDS\CARBOHYDRATES\MINERALS\VITAMINS
     Route: 042
     Dates: start: 20230430, end: 20230501
  50. AMINO ACIDS\CARBOHYDRATES\MINERALS\VITAMINS [Concomitant]
     Active Substance: AMINO ACIDS\CARBOHYDRATES\MINERALS\VITAMINS
     Route: 042
     Dates: start: 20230501, end: 20230502
  51. AMINO ACIDS\CARBOHYDRATES\MINERALS\VITAMINS [Concomitant]
     Active Substance: AMINO ACIDS\CARBOHYDRATES\MINERALS\VITAMINS
     Route: 042
     Dates: start: 20230502, end: 20230503
  52. AMINO ACIDS\CARBOHYDRATES\MINERALS\VITAMINS [Concomitant]
     Active Substance: AMINO ACIDS\CARBOHYDRATES\MINERALS\VITAMINS
     Route: 042
     Dates: start: 20230503, end: 20230504
  53. AMINO ACIDS\CARBOHYDRATES\MINERALS\VITAMINS [Concomitant]
     Active Substance: AMINO ACIDS\CARBOHYDRATES\MINERALS\VITAMINS
     Route: 042
     Dates: start: 20230504, end: 20230505
  54. SOYBEAN OIL [Concomitant]
     Active Substance: SOYBEAN OIL
     Indication: Product used for unknown indication
     Route: 042
     Dates: start: 20230424, end: 20230425
  55. SOYBEAN OIL [Concomitant]
     Active Substance: SOYBEAN OIL
     Route: 042
     Dates: start: 20230425, end: 20230425
  56. SOYBEAN OIL [Concomitant]
     Active Substance: SOYBEAN OIL
     Route: 042
     Dates: start: 20230425, end: 20230426
  57. SOYBEAN OIL [Concomitant]
     Active Substance: SOYBEAN OIL
     Route: 042
     Dates: start: 20230426, end: 20230427
  58. SOYBEAN OIL [Concomitant]
     Active Substance: SOYBEAN OIL
     Route: 042
     Dates: start: 20230427, end: 20230428
  59. SOYBEAN OIL [Concomitant]
     Active Substance: SOYBEAN OIL
     Route: 042
     Dates: start: 20230428, end: 20230429
  60. SOYBEAN OIL [Concomitant]
     Active Substance: SOYBEAN OIL
     Route: 042
     Dates: start: 20230429, end: 20230430
  61. SOYBEAN OIL [Concomitant]
     Active Substance: SOYBEAN OIL
     Route: 042
     Dates: start: 20230430, end: 20230501
  62. SOYBEAN OIL [Concomitant]
     Active Substance: SOYBEAN OIL
     Route: 042
     Dates: start: 20230501, end: 20230502
  63. SOYBEAN OIL [Concomitant]
     Active Substance: SOYBEAN OIL
     Route: 042
     Dates: start: 20230502, end: 20230503
  64. SOYBEAN OIL [Concomitant]
     Active Substance: SOYBEAN OIL
     Route: 042
     Dates: start: 20230503, end: 20230504
  65. SOYBEAN OIL [Concomitant]
     Active Substance: SOYBEAN OIL
     Route: 042
     Dates: start: 20230504, end: 20230505
  66. CHLORASEPTIC SORE THROAT [Concomitant]
     Active Substance: PHENOL
     Indication: Product used for unknown indication
     Dosage: 3 SPRAY(S), Q2H PRN
     Route: 048
     Dates: start: 20230428, end: 20230531
  67. MUPIROCIN [Concomitant]
     Active Substance: MUPIROCIN
     Indication: Product used for unknown indication
     Dosage: UNK, BID
     Route: 061
     Dates: start: 20230501, end: 20230508
  68. MORPHINE [Concomitant]
     Active Substance: MORPHINE
     Indication: Product used for unknown indication
     Dosage: 2 MILLIGRAM, Q4H
     Route: 042
     Dates: start: 20230503, end: 20230503
  69. MORPHINE [Concomitant]
     Active Substance: MORPHINE
     Route: 042
     Dates: start: 20230503, end: 20230504
  70. MORPHINE [Concomitant]
     Active Substance: MORPHINE
     Route: 042
     Dates: start: 20230504, end: 20230504
  71. MORPHINE [Concomitant]
     Active Substance: MORPHINE
     Route: 042
     Dates: start: 20230504, end: 20230504
  72. MORPHINE [Concomitant]
     Active Substance: MORPHINE
     Route: 042
     Dates: start: 20230504, end: 20230504
  73. MORPHINE [Concomitant]
     Active Substance: MORPHINE
     Route: 042
     Dates: start: 20230504, end: 20230505
  74. HYDROMORPHONE [Concomitant]
     Active Substance: HYDROMORPHONE
     Indication: Product used for unknown indication
     Dosage: 0.44 MILLIGRAM, Q4H
     Route: 042
     Dates: start: 20230503, end: 20230503
  75. MORPHINE SULFATE [Concomitant]
     Active Substance: MORPHINE SULFATE
     Indication: Product used for unknown indication
     Route: 042
     Dates: start: 20230504, end: 20230504
  76. NALBUPHINE [Concomitant]
     Active Substance: NALBUPHINE
     Indication: Product used for unknown indication
     Dosage: 1.1 MILLIGRAM, Q6H, PRN
     Route: 042
     Dates: start: 20230503, end: 20230506
  77. CEFEPIME [Concomitant]
     Active Substance: CEFEPIME HYDROCHLORIDE
     Indication: Product used for unknown indication
     Dosage: 2000 MILLIGRAM, Q8H
     Route: 042
     Dates: start: 20230504, end: 20230523
  78. VANCOMYCIN [Concomitant]
     Active Substance: VANCOMYCIN
     Indication: Product used for unknown indication
     Dosage: 440 MILLIGRAM, Q6H
     Route: 042
     Dates: start: 20230504, end: 20230505
  79. ACETAMINOPHEN [Concomitant]
     Active Substance: ACETAMINOPHEN
     Indication: Product used for unknown indication
     Dosage: 640 MILLIGRAM, Q4H, PRN
     Route: 048
     Dates: start: 20230504, end: 20230505
  80. PANTOPRAZOLE [Concomitant]
     Active Substance: PANTOPRAZOLE
     Indication: Product used for unknown indication
     Dosage: 40 MILLIGRAM, QD
     Route: 042
     Dates: start: 20230504, end: 20230526

REACTIONS (2)
  - Bacteraemia [Unknown]
  - Haemorrhage [Recovered/Resolved]

NARRATIVE: CASE EVENT DATE: 20230505
